FAERS Safety Report 11128714 (Version 1)
Quarter: 2015Q2

REPORT INFORMATION
  Report Type: Spontaneous
  Country: GB (occurrence: GB)
  Receive Date: 20150521
  Receipt Date: 20150521
  Transmission Date: 20150821
  Serious: Yes (Hospitalization, Other)
  Sender: FDA-Public Use
  Company Number: GB-TEVA-563282ACC

PATIENT
  Age: 65 Year
  Sex: Male
  Weight: 103 kg

DRUGS (7)
  1. AVASTIN [Suspect]
     Active Substance: BEVACIZUMAB
     Indication: ADENOCARCINOMA GASTRIC
     Dosage: DOSE : 775, DATE OF MOST RECENT ADMINISTRATION: 9 JULY 2010
     Route: 042
     Dates: start: 20100709
  2. LANSOPRAZOLE. [Concomitant]
     Active Substance: LANSOPRAZOLE
     Route: 065
  3. LISINOPRIL. [Concomitant]
     Active Substance: LISINOPRIL
     Route: 065
  4. SIMVASTATIN. [Concomitant]
     Active Substance: SIMVASTATIN
     Route: 065
  5. EPIRUBICIN [Suspect]
     Active Substance: EPIRUBICIN
     Indication: ADENOCARCINOMA GASTRIC
     Route: 042
     Dates: start: 20100709
  6. XELODA [Suspect]
     Active Substance: CAPECITABINE
     Indication: ADENOCARCINOMA GASTRIC
     Dosage: DATE OF MOST RECENT ADMINISTRATION: 25 JULY 2010
     Route: 048
  7. CISPLATIN. [Suspect]
     Active Substance: CISPLATIN
     Indication: ADENOCARCINOMA GASTRIC
     Dosage: DATE OF MOST RECENT ADMINISTRATION: 9 JULY 2010
     Route: 042
     Dates: start: 20100709

REACTIONS (4)
  - Pyrexia [Unknown]
  - Malaise [Unknown]
  - Mucosal inflammation [Recovered/Resolved]
  - Neutropenic sepsis [Recovered/Resolved]

NARRATIVE: CASE EVENT DATE: 20100726
